FAERS Safety Report 11280057 (Version 2)
Quarter: 2015Q3

REPORT INFORMATION
  Report Type: Spontaneous
  Country: US (occurrence: US)
  Receive Date: 20150717
  Receipt Date: 20150820
  Transmission Date: 20151125
  Serious: No
  Sender: FDA-Public Use
  Company Number: GXBR2015US001606

PATIENT
  Sex: Male

DRUGS (1)
  1. CANDESARTAN CILEXETIL. [Suspect]
     Active Substance: CANDESARTAN CILEXETIL
     Indication: MIGRAINE
     Dosage: 16 MG, UNK
     Route: 065

REACTIONS (3)
  - Migraine [Unknown]
  - Blood pressure increased [Unknown]
  - Drug ineffective [Unknown]
